FAERS Safety Report 19095938 (Version 4)
Quarter: 2021Q2

REPORT INFORMATION
  Report Type: Spontaneous
  Country: JP (occurrence: JP)
  Receive Date: 20210406
  Receipt Date: 20210604
  Transmission Date: 20210717
  Serious: Yes (Other)
  Sender: FDA-Public Use
  Company Number: NVSJ2021JP002552

PATIENT
  Age: 71 Year
  Sex: Male

DRUGS (3)
  1. BEOVU [Suspect]
     Active Substance: BROLUCIZUMAB-DBLL
     Dosage: 6 MG
     Route: 031
     Dates: start: 20201215, end: 20201215
  2. BEOVU [Suspect]
     Active Substance: BROLUCIZUMAB-DBLL
     Dosage: 6 MG
     Route: 031
     Dates: start: 20201117, end: 20201117
  3. BEOVU [Suspect]
     Active Substance: BROLUCIZUMAB-DBLL
     Indication: AGE-RELATED MACULAR DEGENERATION
     Dosage: 6 MG
     Route: 031
     Dates: start: 20201013, end: 20201013

REACTIONS (9)
  - Intraocular pressure increased [Recovered/Resolved]
  - Symptom recurrence [Recovering/Resolving]
  - Vitreous floaters [Recovered/Resolved]
  - Anterior chamber cell [Unknown]
  - Retinal ischaemia [Recovered/Resolved]
  - Visual acuity reduced transiently [Recovered/Resolved]
  - Iritis [Recovered/Resolved]
  - Visual impairment [Recovered/Resolved]
  - Subretinal fluid [Recovering/Resolving]

NARRATIVE: CASE EVENT DATE: 20210213
